FAERS Safety Report 8953018 (Version 2)
Quarter: 2012Q4

REPORT INFORMATION
  Report Type: 
  Country: US (occurrence: US)
  Receive Date: 20121205
  Receipt Date: 20121221
  Transmission Date: 20130627
  Serious: Yes (Other)
  Sender: FDA-Public Use
  Company Number: PHEH2012US023796

PATIENT
  Sex: Male

DRUGS (17)
  1. ZOMETA [Suspect]
     Dosage: 4 mg/5 ml once per 28 days
     Route: 042
     Dates: start: 20100322
  2. ZOMETA [Suspect]
     Dosage: 4 mg/5 ml once per month
     Route: 042
     Dates: start: 20100419
  3. ZOMETA [Suspect]
     Dosage: 4 mg/5 ml once per month
     Route: 042
     Dates: start: 20100517
  4. ZOMETA [Suspect]
     Dosage: 4 mg/5 ml once per month
     Route: 042
     Dates: start: 20100621
  5. ZOMETA [Suspect]
     Dosage: 4 mg/5 ml once per month
     Route: 042
     Dates: start: 20100726
  6. ZOMETA [Suspect]
     Dosage: 3 mg/5 ml once per month
     Route: 042
     Dates: start: 20100823
  7. ZOMETA [Suspect]
     Dosage: 3 mg/5 ml once per month
     Route: 042
     Dates: start: 20100920
  8. ZOMETA [Suspect]
     Dosage: 3 mg/5 ml once per month
     Route: 042
     Dates: start: 20101025
  9. ZOMETA [Suspect]
     Dosage: 3 mg/5 ml once per month
     Route: 042
     Dates: start: 20101122
  10. ZOMETA [Suspect]
     Dosage: 3 mg/5 ml once per month
     Route: 042
     Dates: start: 20101220
  11. ZOMETA [Suspect]
     Dosage: 3 mg/5 ml once per month
     Route: 042
     Dates: start: 20110117
  12. ZOMETA [Suspect]
     Dosage: 3 mg/5 ml once per month
     Route: 042
     Dates: start: 20110214
  13. ZOMETA [Suspect]
     Dosage: 3 mg/5 ml once per month
     Route: 042
     Dates: start: 20110314
  14. ZOMETA [Suspect]
     Dosage: 3 mg/5 ml once per month
     Route: 042
     Dates: start: 20110411
  15. ZOMETA [Suspect]
     Dosage: 3 mg/5 ml once per month
     Route: 042
     Dates: start: 20110509
  16. ZOMETA [Suspect]
     Dosage: 3 mg/5 ml once per month
     Route: 042
     Dates: start: 20110620
  17. ZOMETA [Suspect]
     Dosage: 3 mg/5 ml once per month
     Route: 042
     Dates: start: 20110718

REACTIONS (6)
  - Osteonecrosis of jaw [Unknown]
  - Pain in jaw [Unknown]
  - Skeletal injury [Unknown]
  - Bone lesion [Unknown]
  - Aphagia [Unknown]
  - Exposed bone in jaw [Unknown]
